FAERS Safety Report 8923841 (Version 3)
Quarter: 2012Q4

REPORT INFORMATION
  Report Type: 
  Country: GB (occurrence: GB)
  Receive Date: 20121126
  Receipt Date: 20121220
  Transmission Date: 20130627
  Serious: Yes (Other)
  Sender: FDA-Public Use
  Company Number: GB-CELGENEUS-167-21880-12112806

PATIENT
  Age: 64 Year
  Sex: Male

DRUGS (5)
  1. REVLIMID [Suspect]
     Indication: MYELOMA
     Dosage: 25 Milligram
     Route: 048
     Dates: start: 20101201, end: 20121003
  2. REVLIMID [Suspect]
     Route: 048
     Dates: start: 200902, end: 200907
  3. BONEFOS [Concomitant]
     Indication: DRUG USE FOR UNKNOWN INDICATION
     Dosage: 1600 Milligram
     Route: 065
     Dates: start: 2007
  4. OROMORPH [Concomitant]
     Indication: DRUG USE FOR UNKNOWN INDICATION
     Dosage: 20 Milligram
     Route: 065
  5. OROMORPH [Concomitant]
     Dosage: 40 Milligram
     Route: 065
     Dates: start: 201001

REACTIONS (1)
  - Renal cell carcinoma [Unknown]
